FAERS Safety Report 12392309 (Version 5)
Quarter: 2016Q3

REPORT INFORMATION
  Report Type: Spontaneous
  Country: JP (occurrence: JP)
  Receive Date: 20160523
  Receipt Date: 20160805
  Transmission Date: 20161109
  Serious: Yes (Other)
  Sender: FDA-Public Use
  Company Number: JP-ORION CORPORATION ORION PHARMA-ENTC2016-0192

PATIENT
  Sex: Female

DRUGS (6)
  1. DEPAS [Concomitant]
     Active Substance: ETIZOLAM
     Dosage: BEFORE BEDTIME
     Route: 065
  2. STALEVO [Suspect]
     Active Substance: CARBIDOPA\ENTACAPONE\LEVODOPA
     Indication: PARKINSON^S DISEASE
     Dosage: L100: 5 TABS AT WAKEUP, L50: 1 TAB EVERY 2 HOURS AFTER BREAKFAST
     Route: 048
  3. STALEVO [Suspect]
     Active Substance: CARBIDOPA\ENTACAPONE\LEVODOPA
     Route: 048
  4. MIRAPEX [Concomitant]
     Active Substance: PRAMIPEXOLE DIHYDROCHLORIDE
     Dosage: AT WAKE-UP
     Route: 065
  5. STALEVO [Suspect]
     Active Substance: CARBIDOPA\ENTACAPONE\LEVODOPA
     Dosage: 2 TABLETS OF STALEVO L100 AT WAKE-UP, THEREAFTER THE PATIENT TOOK L100 AND SUBSEQUENTLY STALEVO L100
     Route: 048
  6. RIZE [Concomitant]
     Active Substance: CLOTIAZEPAM
     Route: 065

REACTIONS (15)
  - Incorrect dose administered [Unknown]
  - Insomnia [Unknown]
  - Fall [Unknown]
  - Gait disturbance [Unknown]
  - Overdose [Unknown]
  - Intentional product misuse [Unknown]
  - Dyskinesia [Recovered/Resolved]
  - Nausea [Not Recovered/Not Resolved]
  - Pain [Unknown]
  - Drug prescribing error [Unknown]
  - Drug effect decreased [Unknown]
  - Feeling abnormal [Unknown]
  - Chorea [Unknown]
  - Immobile [Recovering/Resolving]
  - Judgement impaired [Unknown]
